FAERS Safety Report 25361449 (Version 1)
Quarter: 2025Q2

REPORT INFORMATION
  Report Type: Spontaneous
  Country: CH (occurrence: CH)
  Receive Date: 20250527
  Receipt Date: 20250527
  Transmission Date: 20250716
  Serious: Yes (Hospitalization)
  Sender: CHEPLAPHARM
  Company Number: None

PATIENT
  Age: 18 Year
  Sex: Female

DRUGS (11)
  1. OLANZAPINE [Suspect]
     Active Substance: OLANZAPINE
     Route: 048
     Dates: start: 20240406, end: 20240406
  2. PREGABALIN [Suspect]
     Active Substance: PREGABALIN
     Route: 048
     Dates: start: 20240406, end: 20240406
  3. PREGABALIN [Suspect]
     Active Substance: PREGABALIN
     Dosage: AT LEAST 4 TABLETS BEFORE AMNESIA ?DAILY DOSE: 150 MILLIGRAM
     Route: 048
     Dates: end: 20240406
  4. XANAX [Suspect]
     Active Substance: ALPRAZOLAM
     Route: 048
     Dates: start: 20240406, end: 20240406
  5. XANAX [Suspect]
     Active Substance: ALPRAZOLAM
     Dosage: TAKEN 2-3 TABLETS  (ALPRAZOLAM CP RET 2 MG MORNING, 2 MG EVENING, PER OS AND 1 MG TWICE DAILY, PE...
     Route: 048
     Dates: end: 20240406
  6. XANAX [Suspect]
     Active Substance: ALPRAZOLAM
     Route: 048
     Dates: end: 20240406
  7. ATARAX [Concomitant]
     Active Substance: HYDROXYZINE HYDROCHLORIDE
     Route: 048
  8. KETAMINE [Concomitant]
     Active Substance: KETAMINE
  9. MIDOMAFETAMINE [Concomitant]
     Active Substance: MIDOMAFETAMINE
  10. COCAINE [Concomitant]
     Active Substance: COCAINE
     Route: 045
  11. HERBALS\TETRAHYDROCANNABINOL UNSPECIFIED [Concomitant]
     Active Substance: HERBALS\TETRAHYDROCANNABINOL UNSPECIFIED

REACTIONS (5)
  - Depressed level of consciousness [Recovered/Resolved]
  - Pupillary reflex impaired [Recovered/Resolved]
  - Respiratory acidosis [Recovered/Resolved]
  - Intentional overdose [Recovered/Resolved]
  - Memory impairment [Not Recovered/Not Resolved]

NARRATIVE: CASE EVENT DATE: 20250406
